FAERS Safety Report 17811688 (Version 1)
Quarter: 2020Q2

REPORT INFORMATION
  Report Type: Spontaneous
  Country: SI (occurrence: SI)
  Receive Date: 20200521
  Receipt Date: 20200521
  Transmission Date: 20200714
  Serious: Yes (Hospitalization)
  Sender: FDA-Public Use
  Company Number: SI-PFIZER INC-2020200979

PATIENT
  Age: 40 Year
  Sex: Male

DRUGS (1)
  1. UNASYN [Suspect]
     Active Substance: AMPICILLIN SODIUM\SULBACTAM SODIUM
     Indication: LIMB OPERATION
     Dosage: 500 MG+1 G/3.2 ML, UNK
     Route: 065
     Dates: start: 20121015, end: 20121022

REACTIONS (1)
  - Enterocolitis haemorrhagic [Unknown]

NARRATIVE: CASE EVENT DATE: 20121025
